FAERS Safety Report 24991322 (Version 1)
Quarter: 2025Q1

REPORT INFORMATION
  Report Type: Spontaneous
  Country: US (occurrence: None)
  Receive Date: 20250220
  Receipt Date: 20250220
  Transmission Date: 20250409
  Serious: Yes (Other)
  Sender: FDA-CTU
  Company Number: None

PATIENT
  Age: 66 Year
  Sex: Female
  Weight: 112.5 kg

DRUGS (5)
  1. RECLAST [Suspect]
     Active Substance: ZOLEDRONIC ACID
     Indication: Osteoporosis
     Route: 042
     Dates: start: 20250203, end: 20250203
  2. Truliticy [Concomitant]
  3. METFORMIN [Concomitant]
     Active Substance: METFORMIN HYDROCHLORIDE
  4. ATENOLOL [Concomitant]
     Active Substance: ATENOLOL
  5. LISINOPRIL [Concomitant]
     Active Substance: LISINOPRIL

REACTIONS (11)
  - Pain [None]
  - Headache [None]
  - Nausea [None]
  - Vomiting [None]
  - Pyrexia [None]
  - Chills [None]
  - Gait inability [None]
  - Oropharyngeal pain [None]
  - Respiratory symptom [None]
  - Streptococcal infection [None]
  - Conjunctivitis [None]

NARRATIVE: CASE EVENT DATE: 20250203
